FAERS Safety Report 5234119-2 (Version None)
Quarter: 2007Q1

REPORT INFORMATION
  Report Type: 
  Country: None (occurrence: None)
  Receive Date: 20070208
  Receipt Date: 20070130
  Transmission Date: 20070707
  Serious: Yes (Other)
  Sender: FDA-Public Use
  Company Number: AU-PFIZER INC-2007009207

PATIENT
  Age: 50 Year
  Sex: Male

DRUGS (4)
  1. LYRICA [Suspect]
     Indication: NEURALGIA
  2. NEURONTIN [Suspect]
  3. ZOLOFT [Suspect]
     Indication: DEPRESSION
  4. ENDEP [Suspect]

REACTIONS (4)
  - FALL [None]
  - HYPERSOMNIA [None]
  - MUSCULAR WEAKNESS [None]
  - TREMOR [None]
